FAERS Safety Report 5458569-4 (Version None)
Quarter: 2007Q3

REPORT INFORMATION
  Report Type: 
  Country: None (occurrence: None)
  Receive Date: 20070919
  Receipt Date: 20070409
  Transmission Date: 20080115
  Serious: No
  Sender: FDA-Public Use
  Company Number: US-ASTRAZENECA-2007UW07008

PATIENT
  Age: 58 Year
  Sex: Female

DRUGS (6)
  1. SEROQUEL [Suspect]
     Indication: BIPOLAR DISORDER
     Route: 048
  2. NORVASC [Concomitant]
  3. ZOCOR [Concomitant]
  4. CELEBREX [Concomitant]
  5. TRAZODONE HCL [Concomitant]
  6. MYSOLINE [Concomitant]

REACTIONS (4)
  - ANXIETY [None]
  - BLOOD PRESSURE INCREASED [None]
  - FEELING COLD [None]
  - HOT FLUSH [None]
